FAERS Safety Report 21813560 (Version 2)
Quarter: 2023Q1

REPORT INFORMATION
  Report Type: Spontaneous
  Country: PL (occurrence: PL)
  Receive Date: 20230103
  Receipt Date: 20230106
  Transmission Date: 20230418
  Serious: Yes (Hospitalization)
  Sender: FDA-Public Use
  Company Number: PL-STRIDES ARCOLAB LIMITED-2023SP000048

PATIENT
  Age: 47 Year
  Sex: Male

DRUGS (2)
  1. AMANTADINE [Suspect]
     Active Substance: AMANTADINE
     Indication: COVID-19
     Dosage: 200 MILLIGRAM PER DAY
     Route: 065
  2. CLARITHROMYCIN [Suspect]
     Active Substance: CLARITHROMYCIN
     Indication: Pneumonia
     Dosage: UNK
     Route: 065

REACTIONS (4)
  - Psychotic disorder [Recovered/Resolved]
  - Intentional product misuse [Unknown]
  - Drug ineffective [Unknown]
  - Off label use [Unknown]
